FAERS Safety Report 7397945-X (Version None)
Quarter: 2011Q2

REPORT INFORMATION
  Report Type: 
  Country: None (occurrence: None)
  Receive Date: 20110406
  Receipt Date: 20101012
  Transmission Date: 20111010
  Serious: Yes (Hospitalization, Other)
  Sender: FDA-Public Use
  Company Number: US-BAYER-200942553NA

PATIENT
  Sex: Female
  Weight: 84.273 kg

DRUGS (16)
  1. NORETHISTERONE [Concomitant]
     Dosage: 0.35 MG, UNK
     Dates: end: 20080419
  2. DOCUSATE SODIUM [Concomitant]
  3. RANITIDINE [Concomitant]
     Dosage: 150 MG, CONT
     Route: 048
  4. ESOMEPRAZOLE [Concomitant]
     Dosage: 20 MG, UNK
     Route: 048
  5. AZITHROMYCIN [Concomitant]
     Dosage: 500 MG, ONCE
  6. YASMIN [Suspect]
     Indication: ORAL CONTRACEPTION
     Route: 048
     Dates: start: 20080101, end: 20080101
  7. ONDANSETRON [Concomitant]
  8. ALBUTEROL [Concomitant]
     Dosage: 0.09 MG, PRN
  9. OXYCET [Concomitant]
  10. YAZ [Suspect]
     Indication: ORAL CONTRACEPTION
     Dates: start: 20000101, end: 20070101
  11. PERCOCET [Concomitant]
  12. AZITHROMYCIN [Concomitant]
     Dosage: 250 MG, QD
     Route: 048
  13. EFFEXOR XR [Concomitant]
     Dosage: 37.5 MG, CONT
     Route: 048
     Dates: start: 20090119
  14. IBUPROFEN [Concomitant]
  15. MICRONOR [Concomitant]
  16. MOTRIN [Concomitant]

REACTIONS (4)
  - NAUSEA [None]
  - VOMITING [None]
  - ABDOMINAL PAIN UPPER [None]
  - CHOLECYSTITIS CHRONIC [None]
